FAERS Safety Report 11067768 (Version 1)
Quarter: 2015Q2

REPORT INFORMATION
  Report Type: Spontaneous
  Country: US (occurrence: None)
  Receive Date: 20150424
  Receipt Date: 20150424
  Transmission Date: 20150821
  Serious: Yes (Hospitalization)
  Sender: FDA-Public Use
  Company Number: None

PATIENT
  Age: 59 Year
  Sex: Female
  Weight: 71.4 kg

DRUGS (2)
  1. TAXOL [Suspect]
     Active Substance: PACLITAXEL
     Dates: end: 20150416
  2. CARBOPLATIN. [Suspect]
     Active Substance: CARBOPLATIN
     Dates: end: 20150416

REACTIONS (9)
  - Vomiting [None]
  - Pyrexia [None]
  - Nausea [None]
  - Chills [None]
  - Leukopenia [None]
  - Urine output decreased [None]
  - Dysuria [None]
  - Neutropenia [None]
  - Oropharyngeal pain [None]

NARRATIVE: CASE EVENT DATE: 20150420
